FAERS Safety Report 18448192 (Version 1)
Quarter: 2020Q4

REPORT INFORMATION
  Report Type: Spontaneous
  Country: GB (occurrence: GB)
  Receive Date: 20201101
  Receipt Date: 20201101
  Transmission Date: 20210114
  Serious: Yes (Other)
  Sender: FDA-Public Use
  Company Number: GB-SHILPA MEDICARE LIMITED-SML-GB-2020-00533

PATIENT

DRUGS (3)
  1. OXALIPLATIN. [Suspect]
     Active Substance: OXALIPLATIN
     Indication: ANGIOCENTRIC LYMPHOMA
     Dosage: ON DAY 1 OF A 15 DAY CYCLE
  2. GEMCITABINE, UNKNOWN [Suspect]
     Active Substance: GEMCITABINE
     Indication: ANGIOCENTRIC LYMPHOMA
     Dosage: ON DAY 1 OF A 15 DAY CYCLE
  3. PEGASPARAGINASE [Suspect]
     Active Substance: PEGASPARGASE
     Indication: ANGIOCENTRIC LYMPHOMA
     Dosage: DOSE: 2500 UNITS/M2, ON DAY 1 OF A 15 DAY CYCLE

REACTIONS (1)
  - Herpes simplex reactivation [Unknown]
